FAERS Safety Report 9335328 (Version 3)
Quarter: 2013Q3

REPORT INFORMATION
  Report Type: Report from Study
  Country: CO (occurrence: CO)
  Receive Date: 20130606
  Receipt Date: 20130824
  Transmission Date: 20140515
  Serious: Yes (Other)
  Sender: FDA-Public Use
  Company Number: CO-ROCHE-1233236

PATIENT
  Sex: Male

DRUGS (1)
  1. RITUXIMAB [Suspect]
     Indication: RHEUMATOID ARTHRITIS
     Route: 042
     Dates: start: 20111014

REACTIONS (3)
  - Dyspnoea [Recovering/Resolving]
  - Pulmonary bulla [Not Recovered/Not Resolved]
  - Cardiac myxoma [Not Recovered/Not Resolved]
